FAERS Safety Report 17393837 (Version 6)
Quarter: 2020Q2

REPORT INFORMATION
  Report Type: Report from Study
  Country: None (occurrence: US)
  Receive Date: 20200209
  Receipt Date: 20200609
  Transmission Date: 20200713
  Serious: Yes (Other)
  Sender: FDA-Public Use
  Company Number: US-ABBVIE-20K-163-3256064-00

PATIENT
  Age: 58 Year
  Sex: Female
  Weight: 120.31 kg

DRUGS (6)
  1. SKYRIZI [Suspect]
     Active Substance: RISANKIZUMAB-RZAA
     Indication: PSORIASIS
     Route: 058
     Dates: start: 20191123
  2. PREDNISONE. [Concomitant]
     Active Substance: PREDNISONE
     Indication: ARTHRITIS
  3. MELATONIN [Concomitant]
     Active Substance: MELATONIN
     Indication: RESTLESS LEGS SYNDROME
  4. IBUPROFEN. [Concomitant]
     Active Substance: IBUPROFEN
     Indication: RESTLESS LEGS SYNDROME
  5. HAND SANITIZER NOS [Suspect]
     Active Substance: ALCOHOL\AVOBENZONE\HOMOSALATE\OCTISALATE\OCTOCRYLENE\OXYBENZONE OR ALCOHOL\HOMOSALATE\OCTINOXATE\OCTISALATE\OXYBENZONE OR ALCOHOL\NAPHAZOLINE HYDROCHLORIDE\POLYETHYLENE GLYCOL 300 OR CITRIC ACID MONOHYDRATE\COCAMIDOPROPYL BETAINE OR ISOPROPYL ALCOHOL
     Indication: PRODUCT USED FOR UNKNOWN INDICATION
     Route: 065
  6. HUMIRA [Suspect]
     Active Substance: ADALIMUMAB
     Indication: PSORIASIS
     Dosage: CITRATE FREE
     Route: 058
     Dates: start: 20180329, end: 2019

REACTIONS (25)
  - Device dislocation [Unknown]
  - Skin exfoliation [Not Recovered/Not Resolved]
  - Rash [Recovered/Resolved]
  - Psoriasis [Recovered/Resolved]
  - Skin haemorrhage [Unknown]
  - Sneezing [Unknown]
  - Arthritis [Recovering/Resolving]
  - Spondylitis [Recovering/Resolving]
  - Skin depigmentation [Not Recovered/Not Resolved]
  - Erythema [Recovered/Resolved]
  - Scar [Recovered/Resolved]
  - Muscle spasms [Unknown]
  - Genital abscess [Unknown]
  - Medical device implantation [Unknown]
  - Post procedural complication [Unknown]
  - Hypersensitivity [Unknown]
  - Pain in extremity [Recovering/Resolving]
  - Restless legs syndrome [Not Recovered/Not Resolved]
  - Rash papular [Unknown]
  - Stress [Unknown]
  - Pruritus [Unknown]
  - Therapeutic product effect incomplete [Unknown]
  - Dry skin [Unknown]
  - Somnolence [Recovered/Resolved]
  - Pain in extremity [Not Recovered/Not Resolved]

NARRATIVE: CASE EVENT DATE: 201912
